FAERS Safety Report 8580634-3 (Version None)
Quarter: 2012Q3

REPORT INFORMATION
  Report Type: 
  Country: None (occurrence: None)
  Receive Date: 20120809
  Receipt Date: 20120803
  Transmission Date: 20120928
  Serious: Yes (Hospitalization)
  Sender: FDA-Public Use
  Company Number: DE-BIOGENIDEC-2012BI029149

PATIENT
  Age: 54 Year
  Sex: Female

DRUGS (3)
  1. LEVOTHYROXINE SODIUM [Concomitant]
     Dates: start: 20000101
  2. BACLOFEN [Concomitant]
     Indication: MUSCLE SPASTICITY
     Dates: start: 20070101
  3. TYSABRI [Suspect]
     Indication: MULTIPLE SCLEROSIS
     Route: 042
     Dates: start: 20071107

REACTIONS (1)
  - SYNOVIAL CYST [None]
